FAERS Safety Report 17056517 (Version 1)
Quarter: 2019Q4

REPORT INFORMATION
  Report Type: Not Available
  Country: US (occurrence: US)
  Receive Date: 20191121
  Receipt Date: 20191121
  Transmission Date: 20200122
  Serious: No
  Sender: FDA-Public Use
  Company Number: US-NEUROCRINE BIOSCIENCES INC.-2019NBI03412

PATIENT
  Age: 77 Year
  Sex: Female

DRUGS (1)
  1. INGREZZA [Suspect]
     Active Substance: VALBENAZINE
     Indication: TARDIVE DYSKINESIA
     Route: 048
     Dates: start: 20191026, end: 20191027

REACTIONS (6)
  - Hypertension [Unknown]
  - Nausea [Unknown]
  - Thinking abnormal [Unknown]
  - Malaise [Unknown]
  - Decreased appetite [Unknown]
  - Urinary retention [Unknown]

NARRATIVE: CASE EVENT DATE: 20191028
